FAERS Safety Report 10166485 (Version 2)
Quarter: 2014Q2

REPORT INFORMATION
  Report Type: Spontaneous
  Country: US (occurrence: US)
  Receive Date: 20140512
  Receipt Date: 20140512
  Transmission Date: 20141212
  Serious: No
  Sender: FDA-Public Use
  Company Number: US-MYLANLABS-2014S1003973

PATIENT
  Age: 56 Year
  Sex: Female
  Weight: 70.76 kg

DRUGS (3)
  1. MORPHINE SULFATE EXTENDED-RELEASE TABLETS [Suspect]
     Indication: PAIN
     Dates: start: 20131214, end: 20140306
  2. CYMBALTA [Concomitant]
     Indication: PAIN
  3. GABAPENTIN [Concomitant]
     Indication: PAIN

REACTIONS (4)
  - Drug effect decreased [Recovered/Resolved]
  - Breakthrough pain [Recovered/Resolved]
  - Somnolence [Recovered/Resolved]
  - Fatigue [Not Recovered/Not Resolved]
